FAERS Safety Report 13349457 (Version 1)
Quarter: 2017Q1

REPORT INFORMATION
  Report Type: Spontaneous
  Country: US (occurrence: US)
  Receive Date: 20170317
  Receipt Date: 20170317
  Transmission Date: 20170428
  Serious: Yes (Disabling)
  Sender: FDA-Public Use
  Company Number: None

PATIENT
  Age: 58 Year
  Sex: Female
  Weight: 72.9 kg

DRUGS (6)
  1. TAMOXIFEN CITRATE. [Suspect]
     Active Substance: TAMOXIFEN CITRATE
     Indication: BREAST CANCER
     Dosage: ?          QUANTITY:30 TABLET(S);?
     Route: 048
     Dates: start: 20160810, end: 20170315
  2. COENZYME Q10 [Concomitant]
     Active Substance: UBIDECARENONE
  3. ARBONNE PROTEIN POWDER AND FIBER [Concomitant]
  4. IMMUNITY BOOSTER [Concomitant]
  5. ARBONNE PROBIOTIC/ENZYME [Concomitant]
  6. MULTI AND VITAMIN C [Concomitant]

REACTIONS (12)
  - Confusional state [None]
  - Fatigue [None]
  - Endometrial thickening [None]
  - Back pain [None]
  - Anxiety [None]
  - Abdominal pain upper [None]
  - Dizziness [None]
  - Asthenia [None]
  - Diarrhoea [None]
  - Melaena [None]
  - Dysgeusia [None]
  - Urinary bladder polyp [None]

NARRATIVE: CASE EVENT DATE: 20170301
